FAERS Safety Report 5917639-4 (Version None)
Quarter: 2008Q4

REPORT INFORMATION
  Report Type: 
  Country: None (occurrence: None)
  Receive Date: 20081014
  Receipt Date: 20081008
  Transmission Date: 20090506
  Serious: Yes (Other)
  Sender: FDA-Public Use
  Company Number: B0541528A

PATIENT
  Age: 45 Year
  Sex: Female

DRUGS (2)
  1. NIQUITIN CQ 4MG LOZENGE, MINT [Suspect]
     Route: 002
     Dates: start: 20070201
  2. NIQUITIN CQ 2MG LOZENGE [Suspect]
     Indication: DRUG USE FOR UNKNOWN INDICATION
     Route: 002

REACTIONS (2)
  - DEPENDENCE [None]
  - OBSESSIVE THOUGHTS [None]
